FAERS Safety Report 20950498 (Version 2)
Quarter: 2022Q4

REPORT INFORMATION
  Report Type: Spontaneous
  Country: US (occurrence: US)
  Receive Date: 20220613
  Receipt Date: 20221022
  Transmission Date: 20230113
  Serious: Yes (Other)
  Sender: FDA-Public Use
  Company Number: US-drreddys-SPO/USA/22/0151007

PATIENT

DRUGS (1)
  1. BUPRENORPHINE\NALOXONE [Suspect]
     Active Substance: BUPRENORPHINE\NALOXONE
     Indication: Drug withdrawal syndrome
     Dosage: 2MG AND 0.5MG
     Route: 060

REACTIONS (4)
  - Myasthenia gravis [Recovered/Resolved]
  - Drug ineffective [Unknown]
  - Withdrawal syndrome [Recovered/Resolved]
  - Product quality issue [Unknown]
